FAERS Safety Report 15500702 (Version 2)
Quarter: 2018Q4

REPORT INFORMATION
  Report Type: Report from Study
  Country: None (occurrence: US)
  Receive Date: 20181015
  Receipt Date: 20181019
  Transmission Date: 20190205
  Serious: Yes (Other)
  Sender: FDA-Public Use
  Company Number: US-ABBVIE-18K-163-2519267-00

PATIENT
  Age: 54 Year
  Sex: Female
  Weight: 56.75 kg

DRUGS (11)
  1. PREDNISONE. [Concomitant]
     Active Substance: PREDNISONE
     Indication: RHEUMATOID ARTHRITIS
  2. ZALEPLON. [Concomitant]
     Active Substance: ZALEPLON
     Indication: SLEEP DISORDER THERAPY
  3. HUMIRA [Suspect]
     Active Substance: ADALIMUMAB
     Indication: RHEUMATOID ARTHRITIS
     Route: 058
     Dates: start: 2015
  4. GABAPENTIN. [Concomitant]
     Active Substance: GABAPENTIN
     Indication: NEUROPATHY PERIPHERAL
  5. LEVOTHYROXINE. [Concomitant]
     Active Substance: LEVOTHYROXINE
     Indication: HYPOTHYROIDISM
  6. LEFLUNOMIDE. [Concomitant]
     Active Substance: LEFLUNOMIDE
     Indication: RHEUMATOID ARTHRITIS
  7. TIZANIDINE. [Concomitant]
     Active Substance: TIZANIDINE
     Indication: MUSCLE SPASMS
  8. EZETIMIBE. [Concomitant]
     Active Substance: EZETIMIBE
     Indication: BLOOD CHOLESTEROL INCREASED
  9. PAROXETINE. [Concomitant]
     Active Substance: PAROXETINE
     Indication: DEPRESSION
  10. ALPRAZOLAM. [Concomitant]
     Active Substance: ALPRAZOLAM
     Indication: ANXIETY
  11. OXYCODONE [Concomitant]
     Active Substance: OXYCODONE
     Indication: PAIN

REACTIONS (3)
  - Haemoglobin increased [Not Recovered/Not Resolved]
  - Polycythaemia vera [Not Recovered/Not Resolved]
  - Haematocrit increased [Not Recovered/Not Resolved]

NARRATIVE: CASE EVENT DATE: 20180803
